FAERS Safety Report 10674786 (Version 1)
Quarter: 2014Q4

REPORT INFORMATION
  Report Type: Spontaneous
  Country: US (occurrence: None)
  Receive Date: 20141210
  Receipt Date: 20141210
  Transmission Date: 20150529
  Serious: Yes (Hospitalization)
  Sender: FDA-Public Use
  Company Number: 20140318CINRY5996

PATIENT
  Age: 45 Year
  Sex: Female

DRUGS (9)
  1. NORCO [Concomitant]
     Active Substance: ACETAMINOPHEN\HYDROCODONE BITARTRATE
  2. CINRYZE [Suspect]
     Active Substance: HUMAN C1-ESTERASE INHIBITOR
     Indication: HEREDITARY ANGIOEDEMA
     Dosage: EVERY 3 TO 4 DAYS, INTRAVENOUS
     Route: 042
     Dates: start: 200906, end: 201402
  3. HP-PAC [Suspect]
     Active Substance: AMOXICILLIN\CLARITHROMYCIN\LANSOPRAZOLE
     Indication: IMMUNOGLOBULINS DECREASED
     Dates: start: 201402, end: 201402
  4. PROZAC [Concomitant]
     Active Substance: FLUOXETINE HYDROCHLORIDE
  5. PROTONIX [Concomitant]
     Active Substance: PANTOPRAZOLE SODIUM
  6. ATIVAN [Concomitant]
     Active Substance: LORAZEPAM
  7. KALBITOR [Concomitant]
     Active Substance: ECALLANTIDE
  8. ZOFRAN [Concomitant]
     Active Substance: ONDANSETRON HYDROCHLORIDE
  9. LEVSIN [Concomitant]
     Active Substance: HYOSCYAMINE SULFATE

REACTIONS (5)
  - Therapy change [None]
  - Angioedema [None]
  - Hereditary angioedema [None]
  - Inappropriate schedule of drug administration [None]
  - Helicobacter infection [None]
